FAERS Safety Report 16801914 (Version 3)
Quarter: 2019Q4

REPORT INFORMATION
  Report Type: Spontaneous
  Country: JP (occurrence: JP)
  Receive Date: 20190912
  Receipt Date: 20191217
  Transmission Date: 20200122
  Serious: Yes (Other)
  Sender: FDA-Public Use
  Company Number: PHJP2019JP011775

PATIENT
  Sex: Female

DRUGS (2)
  1. NEORAL [Suspect]
     Active Substance: CYCLOSPORINE
     Indication: DERMATOMYOSITIS
     Dosage: 150 MG, UNK
     Route: 065
  2. PREDNISOLONE. [Concomitant]
     Active Substance: PREDNISOLONE
     Indication: DERMATOMYOSITIS
     Dosage: 15 MG, UNK
     Route: 065

REACTIONS (7)
  - Abdominal pain [Recovered/Resolved]
  - Pancreatic mass [Unknown]
  - Skin mass [Recovered/Resolved]
  - Secondary immunodeficiency [Unknown]
  - Product use in unapproved indication [Unknown]
  - Lymphoproliferative disorder [Unknown]
  - Lymphocytic infiltration [Recovered/Resolved]
